FAERS Safety Report 8592782-2 (Version None)
Quarter: 2012Q3

REPORT INFORMATION
  Report Type: 
  Country: None (occurrence: None)
  Receive Date: 20120814
  Receipt Date: 20120807
  Transmission Date: 20120928
  Serious: Yes (Hospitalization, Other)
  Sender: FDA-Public Use
  Company Number: US-CELGENEUS-163-21880-12070602

PATIENT
  Sex: Male

DRUGS (16)
  1. PROCRIT [Concomitant]
     Dosage: 60000 IU (INTERNATIONAL UNIT)
     Route: 058
     Dates: start: 20120403
  2. HYDROCORTISONE [Concomitant]
     Route: 065
  3. ASPIRIN [Concomitant]
     Dosage: 325 MILLIGRAM
     Route: 065
  4. DEXAMETHASONE [Concomitant]
     Route: 065
  5. DIGOXIN [Concomitant]
     Route: 065
  6. ALDERAN [Concomitant]
     Route: 065
  7. REVLIMID [Suspect]
     Dosage: 25 MILLIGRAM
     Route: 048
     Dates: start: 20120604
  8. ZOMETA [Concomitant]
     Route: 065
  9. FOLIC ACID [Concomitant]
     Route: 065
  10. REVLIMID [Suspect]
     Dosage: 15 MILLIGRAM
     Route: 048
     Dates: start: 20120716
  11. RAMIPRIL [Concomitant]
     Route: 065
  12. CARTIA XT [Concomitant]
     Route: 065
  13. REVLIMID [Suspect]
     Indication: MULTIPLE MYELOMA
     Route: 048
     Dates: start: 20110107
  14. PREDNISONE TAB [Concomitant]
     Route: 065
  15. TRAVATAN [Concomitant]
     Route: 065
  16. HYDROCODONE BITARTRATE + ACETAMINOPHEN [Concomitant]
     Route: 065

REACTIONS (4)
  - DELUSIONAL DISORDER, UNSPECIFIED TYPE [None]
  - DISEASE COMPLICATION [None]
  - FATIGUE [None]
  - INSOMNIA [None]
